FAERS Safety Report 19996471 (Version 1)
Quarter: 2021Q4

REPORT INFORMATION
  Report Type: Spontaneous
  Country: US (occurrence: US)
  Receive Date: 20211025
  Receipt Date: 20211025
  Transmission Date: 20220303
  Serious: Yes (Hospitalization)
  Sender: FDA-Public Use
  Company Number: None

PATIENT
  Sex: Female

DRUGS (10)
  1. CAPECITABINE [Suspect]
     Active Substance: CAPECITABINE
     Indication: Breast cancer female
     Route: 048
     Dates: start: 20210921
  2. CLARITIN TAB [Concomitant]
  3. CLONIDINE TAB [Concomitant]
  4. DILTIAZEM CAP [Concomitant]
  5. ELIQUIS [Concomitant]
     Active Substance: APIXABAN
  6. LISINOPRIL [Concomitant]
     Active Substance: LISINOPRIL
  7. MESALAMINE TAB [Concomitant]
  8. PANTOPRAZOLE TAB [Concomitant]
  9. SINGULAIR [Concomitant]
     Active Substance: MONTELUKAST SODIUM
  10. SYMBICORT AER [Concomitant]

REACTIONS (2)
  - Cardiac disorder [None]
  - Therapy interrupted [None]
